FAERS Safety Report 8764353 (Version 3)
Quarter: 2012Q4

REPORT INFORMATION
  Report Type: 
  Country: BR (occurrence: BR)
  Receive Date: 20120831
  Receipt Date: 20120911
  Transmission Date: 20130627
  Serious: Yes (Hospitalization, Other)
  Sender: FDA-Public Use
  Company Number: PHHY2009BR16473

PATIENT
  Sex: Female
  Weight: 71 kg

DRUGS (5)
  1. FORASEQ [Suspect]
     Indication: DYSPNOEA
     Dosage: 1 DF, BID (once in the morning and once in the night twice a day)
  2. DIOVAN [Concomitant]
     Indication: HYPERTENSION
     Dosage: 1 DF,
     Route: 048
  3. OMEPRAZOLE [Concomitant]
     Indication: HIATUS HERNIA
     Dosage: 1 DF, daily
     Route: 048
  4. SIMVASTATIN [Concomitant]
     Indication: BLOOD CHOLESTEROL INCREASED
     Dosage: 1 DF,
  5. OMCILON AM [Concomitant]
     Indication: HYPERSENSITIVITY

REACTIONS (15)
  - Head discomfort [Recovered/Resolved]
  - Wheezing [Unknown]
  - Pneumonia [Unknown]
  - Venous occlusion [Not Recovered/Not Resolved]
  - Arthralgia [Not Recovered/Not Resolved]
  - Pain in extremity [Not Recovered/Not Resolved]
  - Hiatus hernia [Unknown]
  - Hypersensitivity [Recovered/Resolved]
  - Nervousness [Recovered/Resolved]
  - Nausea [Not Recovered/Not Resolved]
  - Device malfunction [Unknown]
  - Face oedema [Unknown]
  - Lip swelling [Unknown]
  - Feeling jittery [None]
  - Treatment noncompliance [None]
